FAERS Safety Report 22643154 (Version 1)
Quarter: 2023Q2

REPORT INFORMATION
  Report Type: Spontaneous
  Country: GB (occurrence: GB)
  Receive Date: 20230627
  Receipt Date: 20230627
  Transmission Date: 20230721
  Serious: Yes (Hospitalization)
  Sender: FDA-Public Use
  Company Number: GB-NOVITIUMPHARMA-2023GBNVP00996

PATIENT
  Age: 30 Year
  Sex: Male

DRUGS (4)
  1. ALPRAZOLAM [Suspect]
     Active Substance: ALPRAZOLAM
     Indication: Product used for unknown indication
  2. DIAZEPAM [Concomitant]
     Active Substance: DIAZEPAM
     Indication: Product used for unknown indication
  3. METHAMPHETAMINE [Concomitant]
     Active Substance: METHAMPHETAMINE
     Indication: Product used for unknown indication
  4. BUTYROLACTONE [Concomitant]
     Active Substance: BUTYROLACTONE
     Indication: Product used for unknown indication

REACTIONS (5)
  - Acidosis [Unknown]
  - Mydriasis [Unknown]
  - Blood potassium increased [Unknown]
  - Vomiting [Unknown]
  - Intentional product misuse [Unknown]
